FAERS Safety Report 7639077-9 (Version None)
Quarter: 2011Q3

REPORT INFORMATION
  Report Type: 
  Country: None (occurrence: None)
  Receive Date: 20110727
  Receipt Date: 20110721
  Transmission Date: 20111222
  Serious: Yes (Hospitalization, Other)
  Sender: FDA-Public Use
  Company Number: US-ABBOTT-11P-163-0707844-00

PATIENT
  Sex: Female
  Weight: 88.984 kg

DRUGS (21)
  1. LOVASTATIN [Concomitant]
     Indication: PRODUCT USED FOR UNKNOWN INDICATION
  2. LIPITOR [Concomitant]
     Indication: BLOOD CHOLESTEROL INCREASED
  3. HUMIRA [Suspect]
  4. NEURONTIN [Concomitant]
     Indication: DIABETIC NEUROPATHY
  5. ULTRAM [Concomitant]
     Indication: INSOMNIA
     Dosage: AT BEDTIME
  6. MULTI-VITAMIN [Concomitant]
     Indication: VITAMIN SUPPLEMENTATION
  7. LASIX [Concomitant]
     Indication: HYPERTENSION
  8. SINGULAIR [Concomitant]
     Indication: ASTHMA
  9. ASPIRIN [Concomitant]
     Indication: PRODUCT USED FOR UNKNOWN INDICATION
     Dosage: IN AM
  10. HUMALOG [Concomitant]
     Indication: DIABETES MELLITUS
     Dosage: WITH EVERY MEAL
  11. LANTUS [Concomitant]
     Indication: DIABETES MELLITUS
     Dosage: AT NIGHT
  12. LOSARTAN POTASSIUM [Concomitant]
     Indication: HYPERTENSION
     Dosage: AT BEDTIME
  13. RECLAST [Concomitant]
     Indication: BONE DISORDER
     Route: 042
  14. POTASSIUM CHLORIDE [Concomitant]
     Indication: MINERAL SUPPLEMENTATION
  15. TRAMADOL 5 [Concomitant]
     Indication: PRODUCT USED FOR UNKNOWN INDICATION
  16. CALCIUM ACETATE [Concomitant]
     Indication: MINERAL SUPPLEMENTATION
  17. HUMIRA [Suspect]
     Indication: RHEUMATOID ARTHRITIS
     Dates: start: 20061001
  18. FOLIC ACID [Concomitant]
     Indication: VITAMIN SUPPLEMENTATION
  19. VALIUM [Concomitant]
     Indication: PRODUCT USED FOR UNKNOWN INDICATION
  20. VITAMIN B-12 [Concomitant]
     Indication: VITAMIN SUPPLEMENTATION
  21. VITAMIN D [Concomitant]
     Indication: VITAMIN SUPPLEMENTATION
     Dosage: FOR 12 WEEKS

REACTIONS (5)
  - INTERVERTEBRAL DISC PROTRUSION [None]
  - SURGERY [None]
  - SPINAL DISORDER [None]
  - INCISION SITE PAIN [None]
  - SPINAL COMPRESSION FRACTURE [None]
